FAERS Safety Report 7883160-X (Version None)
Quarter: 2011Q4

REPORT INFORMATION
  Report Type: 
  Country: None (occurrence: None)
  Receive Date: 20111101
  Receipt Date: 20111101
  Transmission Date: 20120403
  Serious: Yes (Hospitalization)
  Sender: FDA-Public Use
  Company Number: None

PATIENT
  Sex: Male
  Weight: 76.7 kg

DRUGS (3)
  1. KEFLEX [Concomitant]
  2. ATENOLOL [Concomitant]
  3. PLATINOL [Suspect]
     Dosage: 185 MG
     Dates: end: 20090203

REACTIONS (3)
  - RENAL FAILURE ACUTE [None]
  - DEHYDRATION [None]
  - OROPHARYNGEAL PAIN [None]
